FAERS Safety Report 9185991 (Version 1)
Quarter: 2013Q1

REPORT INFORMATION
  Report Type: Spontaneous
  Country: US (occurrence: None)
  Receive Date: 20120628
  Receipt Date: 20120628
  Transmission Date: 20140127
  Serious: Yes (Disabling)
  Sender: FDA-Public Use
  Company Number: PHEH2012US008809

PATIENT
  Sex: Female

DRUGS (1)
  1. RECLAST (ZOLEDRONATE) SOLUTION FOR INJECTION [Suspect]
     Indication: OSTEOPOROSIS
     Route: 042
     Dates: start: 20120321

REACTIONS (5)
  - Musculoskeletal chest pain [None]
  - Headache [None]
  - Pyrexia [None]
  - Acute phase reaction [None]
  - Disturbance in attention [None]
